FAERS Safety Report 17817817 (Version 2)
Quarter: 2020Q2

REPORT INFORMATION
  Report Type: Spontaneous
  Country: US (occurrence: US)
  Receive Date: 20200522
  Receipt Date: 20200611
  Transmission Date: 20200714
  Serious: Yes (Hospitalization, Other)
  Sender: FDA-Public Use
  Company Number: US-GILEAD-2020-0467489

PATIENT
  Age: 63 Year
  Sex: Female

DRUGS (3)
  1. RIFABUTIN. [Interacting]
     Active Substance: RIFABUTIN
     Indication: LATENT TUBERCULOSIS
     Dosage: 300 MG, QD FOR 4 MONTHS, 9 MONTHS PRIOR
     Route: 065
  2. GENVOYA [Suspect]
     Active Substance: COBICISTAT\ELVITEGRAVIR\EMTRICITABINE\TENOFOVIR ALAFENAMIDE FUMARATE
     Indication: HIV INFECTION
     Dosage: 1 DOSAGE FORM, STARTED 5 MONTHS PRIOR TO ADMISSION
     Route: 065
  3. RIFABUTIN. [Interacting]
     Active Substance: RIFABUTIN
     Dosage: 300 MG, QD FRO 3 MONTHS, PRIOR TO ADMISSION
     Route: 065

REACTIONS (4)
  - Hypopyon [Recovered/Resolved]
  - Uveitis [Recovered/Resolved]
  - Product dispensing error [Recovered/Resolved]
  - Drug interaction [Recovered/Resolved]
